FAERS Safety Report 25657746 (Version 2)
Quarter: 2025Q3

REPORT INFORMATION
  Report Type: Spontaneous
  Country: US (occurrence: US)
  Receive Date: 20250808
  Receipt Date: 20250904
  Transmission Date: 20251020
  Serious: No
  Sender: KARYOPHARM THERAPEUTICS
  Company Number: US-KARYOPHARM-2025KPT100572

PATIENT

DRUGS (23)
  1. SELINEXOR [Suspect]
     Active Substance: SELINEXOR
     Indication: Plasma cell myeloma
     Route: 048
     Dates: start: 20250802
  2. ACETAMINOPHEN [Concomitant]
     Active Substance: ACETAMINOPHEN
  3. ASPIRIN [Concomitant]
     Active Substance: ASPIRIN
  4. CYCLOPHOSPHAMIDE [Concomitant]
     Active Substance: CYCLOPHOSPHAMIDE
  5. DEXAMETHASONE [Concomitant]
     Active Substance: DEXAMETHASONE
  6. ENTECAVIR [Concomitant]
     Active Substance: ENTECAVIR
  7. FINASTERIDE [Concomitant]
     Active Substance: FINASTERIDE
  8. LACTULOSE [Concomitant]
     Active Substance: LACTULOSE
  9. LOSARTAN [Concomitant]
     Active Substance: LOSARTAN
  10. METOPROLOL TARTRATE [Concomitant]
     Active Substance: METOPROLOL TARTRATE
  11. NORCO [Concomitant]
     Active Substance: ACETAMINOPHEN\HYDROCODONE BITARTRATE
  12. ONDANSETRON [Concomitant]
     Active Substance: ONDANSETRON
  13. OXYCODONE [Concomitant]
     Active Substance: OXYCODONE
  14. PRAVASTATIN [Concomitant]
     Active Substance: PRAVASTATIN
  15. PROCHLORPERAZINE [Concomitant]
     Active Substance: PROCHLORPERAZINE
  16. TAMSULOSIN [Concomitant]
     Active Substance: TAMSULOSIN
  17. TRAMADOL [Concomitant]
     Active Substance: TRAMADOL
  18. XGEVA [Concomitant]
     Active Substance: DENOSUMAB
  19. ACYCLOVIR [Concomitant]
     Active Substance: ACYCLOVIR
  20. ALBUTEROL SULFATE [Concomitant]
     Active Substance: ALBUTEROL SULFATE
  21. AMLODIPINE [Concomitant]
     Active Substance: AMLODIPINE BESYLATE
  22. BACTRIM DS [Concomitant]
     Active Substance: SULFAMETHOXAZOLE\TRIMETHOPRIM
  23. HYDROQUINONE [Concomitant]
     Active Substance: HYDROQUINONE

REACTIONS (5)
  - Somnolence [Unknown]
  - Diarrhoea [Not Recovered/Not Resolved]
  - Asthenia [Unknown]
  - Nausea [Unknown]
  - Vomiting [Unknown]

NARRATIVE: CASE EVENT DATE: 20250101
